FAERS Safety Report 26082891 (Version 2)
Quarter: 2025Q4

REPORT INFORMATION
  Report Type: Spontaneous
  Country: US (occurrence: US)
  Receive Date: 20251124
  Receipt Date: 20251208
  Transmission Date: 20260119
  Serious: No
  Sender: MERCK SHARP & DOHME LLC
  Company Number: US-TILLOTTSAB-20250580

PATIENT
  Age: 79 Year
  Sex: Male

DRUGS (12)
  1. FIDAXOMICIN [Suspect]
     Active Substance: FIDAXOMICIN
     Indication: Clostridium difficile colitis
     Dosage: DOSE UNKNOWN; RECTAL IRRIGATION SOLUTION STRENGTH: 200 MG/100 ML (1 X 200 MG FIDAXOMICIN TABLET U...
     Route: 054
  2. VASOPRESSIN [Concomitant]
     Active Substance: VASOPRESSIN
  3. HYDROCORTISONE [Concomitant]
     Active Substance: HYDROCORTISONE
  4. LOPERAMIDE [Concomitant]
     Active Substance: LOPERAMIDE
     Indication: Clostridium difficile infection
  5. NOREPINEPHRINE [Concomitant]
     Active Substance: NOREPINEPHRINE
  6. EPINEPHRINE [Concomitant]
     Active Substance: EPINEPHRINE
  7. AMOXICILLIN\CLAVULANIC ACID [Concomitant]
     Active Substance: AMOXICILLIN\CLAVULANIC ACID
     Indication: Upper respiratory tract infection
     Dosage: AMOXICILLIN 500 MG AND CLAVULANIC ACID 125 MG
  8. VANCOMYCIN [Concomitant]
     Active Substance: VANCOMYCIN
     Dosage: 500 MG 4 TIMES A DAY
     Route: 048
  9. METRONIDAZOLE [Concomitant]
     Active Substance: METRONIDAZOLE
     Dosage: TIME INTERVAL: 0.33333333 DAYS: 500 MG 3 TIMES A DAY
     Route: 042
  10. LISINOPRIL [Concomitant]
     Active Substance: LISINOPRIL
     Dosage: UNK
  11. GEMFIBROZIL [Concomitant]
     Active Substance: GEMFIBROZIL
  12. PRAVASTATIN [Concomitant]
     Active Substance: PRAVASTATIN

REACTIONS (1)
  - Off label use [Unknown]
